FAERS Safety Report 19738074 (Version 1)
Quarter: 2021Q3

REPORT INFORMATION
  Report Type: Spontaneous
  Country: FR (occurrence: FR)
  Receive Date: 20210823
  Receipt Date: 20210823
  Transmission Date: 20211014
  Serious: Yes (Other)
  Sender: FDA-Public Use
  Company Number: FR-MYLANLABS-2021M1053868

PATIENT
  Age: 44 Year
  Sex: Male
  Weight: 61 kg

DRUGS (1)
  1. ACAMPROSATE [Suspect]
     Active Substance: ACAMPROSATE
     Indication: ALCOHOL USE DISORDER
     Dosage: 6 DOSAGE FORM, QD (2 CPS 3 FOIS/J)
     Route: 048
     Dates: start: 20210322, end: 20210412

REACTIONS (5)
  - Diarrhoea [Recovered/Resolved]
  - Hallucination, auditory [Recovered/Resolved]
  - Sleep talking [Recovered/Resolved]
  - Agitation [Recovered/Resolved]
  - Somnambulism [Recovered/Resolved]

NARRATIVE: CASE EVENT DATE: 202103
